FAERS Safety Report 7559409-X (Version None)
Quarter: 2011Q2

REPORT INFORMATION
  Report Type: 
  Country: None (occurrence: None)
  Receive Date: 20110621
  Receipt Date: 20110609
  Transmission Date: 20111010
  Serious: Yes (Hospitalization)
  Sender: FDA-Public Use
  Company Number: FR-SANOFI-AVENTIS-2010SA061594

PATIENT
  Sex: Female
  Weight: 60 kg

DRUGS (4)
  1. JOSACINE [Concomitant]
     Indication: PERTUSSIS
     Dosage: DOSE:2 UNIT(S)
     Route: 048
     Dates: start: 20110301, end: 20110316
  2. AMOXICILLIN [Concomitant]
     Indication: BRONCHITIS
     Dosage: DOSE:2 UNIT(S)
     Route: 048
     Dates: start: 20110215, end: 20110222
  3. LOVENOX [Suspect]
     Indication: DEEP VEIN THROMBOSIS
     Dosage: GIVEN AT CURATIVE DOSE
     Route: 058
     Dates: start: 20100921, end: 20101101
  4. LOVENOX [Suspect]
     Route: 058
     Dates: start: 20101101, end: 20110413

REACTIONS (2)
  - PREMATURE SEPARATION OF PLACENTA [None]
  - DRUG EXPOSURE DURING PREGNANCY [None]
